FAERS Safety Report 6428212-6 (Version None)
Quarter: 2009Q4

REPORT INFORMATION
  Report Type: 
  Country: None (occurrence: None)
  Receive Date: 20091105
  Receipt Date: 20091104
  Transmission Date: 20100525
  Serious: Yes (Hospitalization)
  Sender: FDA-Public Use
  Company Number: FR-ROCHE-666400

PATIENT
  Age: 55 Year
  Sex: Male
  Weight: 70 kg

DRUGS (2)
  1. XELODA [Suspect]
     Dosage: GIVEN FROM DAY 1 TO DAY 14 EVERY 21 DAYS
     Route: 048
     Dates: start: 20090601, end: 20091010
  2. BEVACIZUMAB [Suspect]
     Route: 042
     Dates: start: 20090115, end: 20091010

REACTIONS (1)
  - HAEMORRHAGE [None]
